FAERS Safety Report 5110714-6 (Version None)
Quarter: 2006Q3

REPORT INFORMATION
  Report Type: 
  Country: None (occurrence: None)
  Receive Date: 20060919
  Receipt Date: 20060906
  Transmission Date: 20061208
  Serious: Yes (Hospitalization)
  Sender: FDA-Public Use
  Company Number: 2006BI000609

PATIENT
  Age: 62 Year
  Sex: Female
  Weight: 68.0396 kg

DRUGS (7)
  1. AVONEX [Suspect]
     Indication: MULTIPLE SCLEROSIS
     Dosage: 30 UG;QW;IM
     Route: 030
     Dates: start: 19960523, end: 20030902
  2. AVONEX [Suspect]
     Indication: MULTIPLE SCLEROSIS
     Dosage: 30 UG;QW;IM
     Route: 030
     Dates: start: 20030909
  3. AMANTADINE HCL [Concomitant]
  4. NEXIUM [Concomitant]
  5. ZETIA [Concomitant]
  6. EFFEXOR [Concomitant]
  7. VERAPAMIL [Concomitant]

REACTIONS (5)
  - CHOLELITHIASIS [None]
  - FLUSHING [None]
  - HEADACHE [None]
  - PAIN [None]
  - PYREXIA [None]
